FAERS Safety Report 5724761-4 (Version None)
Quarter: 2008Q2

REPORT INFORMATION
  Report Type: 
  Country: None (occurrence: None)
  Receive Date: 20080501
  Receipt Date: 20080422
  Transmission Date: 20081010
  Serious: Yes (Hospitalization)
  Sender: FDA-Public Use
  Company Number: FR-NOVOPROD-274781

PATIENT
  Age: 88 Year
  Sex: Male

DRUGS (9)
  1. NOVONORM [Suspect]
     Indication: DRUG USE FOR UNKNOWN INDICATION
     Dates: end: 20080116
  2. TIAPRIDAL                          /00435701/ [Concomitant]
  3. PARKINANE [Concomitant]
     Dates: start: 20061101, end: 20080115
  4. LASILIX                            /00032601/ [Concomitant]
     Dates: end: 20080101
  5. TANAKAN                            /01003103/ [Concomitant]
     Dates: end: 20080115
  6. AMLOR [Concomitant]
  7. ACTRAPID [Concomitant]
  8. INSULATARD [Concomitant]
     Dosage: 100 UI AM + 6 UI PN
  9. ROCEPHIN [Concomitant]

REACTIONS (1)
  - CONFUSIONAL STATE [None]
